FAERS Safety Report 5424584-X (Version None)
Quarter: 2007Q3

REPORT INFORMATION
  Report Type: 
  Country: None (occurrence: None)
  Receive Date: 20070822
  Receipt Date: 20070816
  Transmission Date: 20080115
  Serious: Yes (Hospitalization)
  Sender: FDA-Public Use
  Company Number: TPA2007A01749

PATIENT
  Age: 72 Year
  Sex: Male
  Weight: 90.7194 kg

DRUGS (4)
  1. ACTOS [Suspect]
     Indication: TYPE 2 DIABETES MELLITUS
     Dosage: 45 MG, 1 IN 1 D, PER ORAL
     Route: 048
     Dates: start: 20050101, end: 20070812
  2. GLUCOTROL XL [Concomitant]
  3. ATENOLOL [Concomitant]
  4. CRESTOR [Concomitant]

REACTIONS (2)
  - CAROTID ARTERY OCCLUSION [None]
  - PALPITATIONS [None]
